FAERS Safety Report 6137129-6 (Version None)
Quarter: 2009Q1

REPORT INFORMATION
  Report Type: 
  Country: None (occurrence: None)
  Receive Date: 20090326
  Receipt Date: 20090326
  Transmission Date: 20090719
  Serious: Yes (Life-Threatening, Hospitalization, Other)
  Sender: FDA-Public Use
  Company Number: None

PATIENT
  Age: 31 Year
  Sex: Male
  Weight: 83.9154 kg

DRUGS (3)
  1. GEODON [Suspect]
     Indication: AGITATION
     Dosage: 80 MG. 1 IN AM, 2 PM PO
     Route: 048
     Dates: start: 20090215, end: 20090313
  2. GEODON [Suspect]
     Indication: PSYCHOTIC DISORDER
     Dosage: 80 MG. 1 IN AM, 2 PM PO
     Route: 048
     Dates: start: 20090215, end: 20090313
  3. GABAPENTIN [Suspect]
     Indication: ANXIETY
     Dosage: 100 MG 3 TIMES PER DAY PO
     Route: 048
     Dates: start: 20090126, end: 20090313

REACTIONS (8)
  - ABNORMAL BEHAVIOUR [None]
  - AGITATION [None]
  - CONDITION AGGRAVATED [None]
  - CONFUSIONAL STATE [None]
  - DELUSION [None]
  - FEAR [None]
  - GENERAL PHYSICAL HEALTH DETERIORATION [None]
  - HALLUCINATION [None]
